FAERS Safety Report 22098065 (Version 5)
Quarter: 2023Q4

REPORT INFORMATION
  Report Type: Report from Study
  Country: CA (occurrence: CA)
  Receive Date: 20230315
  Receipt Date: 20231107
  Transmission Date: 20240110
  Serious: Yes (Other)
  Sender: FDA-Public Use
  Company Number: CA-SAMSUNG BIOEPIS-SB-2023-06851

PATIENT
  Age: 32 Year
  Sex: Male
  Weight: 75.6 kg

DRUGS (4)
  1. RENFLEXIS [Suspect]
     Active Substance: INFLIXIMAB-ABDA
     Indication: Crohn^s disease
     Dosage: VIAL;
     Route: 065
     Dates: start: 20200427
  2. RENFLEXIS [Suspect]
     Active Substance: INFLIXIMAB-ABDA
     Route: 042
     Dates: start: 20201219
  3. RENFLEXIS [Suspect]
     Active Substance: INFLIXIMAB-ABDA
     Dosage: UNKNOWN
     Route: 065
  4. COVID-19 VACCINE NOS [Suspect]
     Active Substance: COVID-19 VACCINE NOS
     Indication: COVID-19 immunisation
     Dosage: UNKNOWN
     Route: 030

REACTIONS (6)
  - Anaphylactic reaction [Recovered/Resolved]
  - Gout [Not Recovered/Not Resolved]
  - Lip swelling [Recovered/Resolved]
  - Incorrect drug administration rate [Unknown]
  - Product use issue [Unknown]
  - Off label use [Unknown]

NARRATIVE: CASE EVENT DATE: 20230302
